FAERS Safety Report 10659437 (Version 1)
Quarter: 2014Q4

REPORT INFORMATION
  Report Type: Report from Study
  Country: US (occurrence: US)
  Receive Date: 20141217
  Receipt Date: 20141217
  Transmission Date: 20150529
  Serious: Yes (Other)
  Sender: FDA-Public Use
  Company Number: US-ABBVIE-14K-163-1321141-00

PATIENT
  Sex: Female

DRUGS (2)
  1. HUMIRA [Suspect]
     Active Substance: ADALIMUMAB
     Indication: PSORIASIS
     Route: 065
     Dates: start: 20120910
  2. CAFFEINE. [Suspect]
     Active Substance: CAFFEINE
     Indication: PRODUCT USED FOR UNKNOWN INDICATION
     Route: 065

REACTIONS (15)
  - Crying [Unknown]
  - Feeling abnormal [Unknown]
  - Hyperacusis [Unknown]
  - Disturbance in attention [Unknown]
  - Thirst [Unknown]
  - Dyspnoea [Unknown]
  - Stress [Unknown]
  - Hepatic pain [Unknown]
  - Yellow skin [Unknown]
  - Dysphagia [Unknown]
  - Dyspepsia [Unknown]
  - Depression [Not Recovered/Not Resolved]
  - Dizziness [Unknown]
  - Mobility decreased [Unknown]
  - General physical health deterioration [Unknown]
